FAERS Safety Report 6966273-6 (Version None)
Quarter: 2010Q3

REPORT INFORMATION
  Report Type: 
  Country: None (occurrence: None)
  Receive Date: 20100903
  Receipt Date: 20100824
  Transmission Date: 20110219
  Serious: Yes (Other)
  Sender: FDA-Public Use
  Company Number: FR-ABBOTT-10P-056-0630869-00

PATIENT
  Sex: Male

DRUGS (5)
  1. ENANTONE LP 30 MG PREP INJ [Suspect]
     Indication: PROSTATE CANCER
     Dates: start: 20100123
  2. VASERETIC [Concomitant]
     Indication: HYPERTENSION
     Route: 048
  3. MEDIATOR [Concomitant]
     Indication: DIABETES MELLITUS
     Route: 048
  4. TAHOR [Concomitant]
     Indication: HYPERCHOLESTEROLAEMIA
     Route: 048
  5. TAHOR [Concomitant]
     Indication: CARDIOVASCULAR EVENT PROPHYLAXIS

REACTIONS (2)
  - INJECTION SITE HAEMATOMA [None]
  - INJECTION SITE VESICLES [None]
